FAERS Safety Report 23456108 (Version 2)
Quarter: 2024Q1

REPORT INFORMATION
  Report Type: Spontaneous
  Country: US (occurrence: US)
  Receive Date: 20240130
  Receipt Date: 20240209
  Transmission Date: 20240410
  Serious: Yes (Hospitalization, Other)
  Sender: FDA-Public Use
  Company Number: US-MYLANLABS-2024M1008385

PATIENT
  Age: 8 Decade
  Sex: Female

DRUGS (2)
  1. PACLITAXEL [Suspect]
     Active Substance: PACLITAXEL
     Indication: Papillary serous endometrial carcinoma
     Dosage: UNK UNK, CYCLE
     Route: 065
  2. CARBOPLATIN [Concomitant]
     Active Substance: CARBOPLATIN
     Indication: Papillary serous endometrial carcinoma
     Dosage: UNK UNK, CYCLE
     Route: 065

REACTIONS (6)
  - Myocarditis [Unknown]
  - Ejection fraction decreased [Unknown]
  - Systolic dysfunction [Unknown]
  - Pleural effusion [Unknown]
  - Deep vein thrombosis [Unknown]
  - Pulmonary oedema [Unknown]
